FAERS Safety Report 16107355 (Version 1)
Quarter: 2019Q1

REPORT INFORMATION
  Report Type: Spontaneous
  Country: US (occurrence: US)
  Receive Date: 20190322
  Receipt Date: 20190322
  Transmission Date: 20190418
  Serious: Yes (Other)
  Sender: FDA-Public Use
  Company Number: US-PURDUE-USA-2019-0146575

PATIENT
  Age: 75 Year
  Sex: Male

DRUGS (3)
  1. HYDROCODONE BITARTRATE/ACETAMINOPHEN [Concomitant]
     Active Substance: ACETAMINOPHEN\HYDROCODONE BITARTRATE
     Indication: ANALGESIC THERAPY
     Dosage: 2-3 10/325 MG, DAILY
     Route: 048
     Dates: start: 2014
  2. BUTRANS [Suspect]
     Active Substance: BUPRENORPHINE
     Dosage: 20 MCG/HR, WEEKLY
     Route: 062
     Dates: start: 201901, end: 201902
  3. BUTRANS [Suspect]
     Active Substance: BUPRENORPHINE
     Indication: ANALGESIC THERAPY
     Dosage: 10 MCG/HR, WEEKLY
     Route: 062
     Dates: start: 201809

REACTIONS (14)
  - Scoliosis [Unknown]
  - Drug hypersensitivity [Unknown]
  - Application site pruritus [Unknown]
  - Product residue present [Unknown]
  - Wrong technique in product usage process [Recovered/Resolved]
  - Costochondritis [Unknown]
  - Medical device implantation [Unknown]
  - Feeling abnormal [Recovered/Resolved]
  - Application site pain [Unknown]
  - Application site rash [Unknown]
  - Arthritis [Unknown]
  - Device leakage [Unknown]
  - Excessive exercise [Recovered/Resolved]
  - Application site erythema [Unknown]

NARRATIVE: CASE EVENT DATE: 201809
